FAERS Safety Report 7889214-6 (Version None)
Quarter: 2011Q4

REPORT INFORMATION
  Report Type: 
  Country: None (occurrence: None)
  Receive Date: 20111103
  Receipt Date: 20111021
  Transmission Date: 20120403
  Serious: Yes (Hospitalization)
  Sender: FDA-Public Use
  Company Number: JP-MERCK-1110USA03638

PATIENT
  Age: 70 Year
  Sex: Male

DRUGS (1)
  1. PEPCID [Suspect]
     Route: 048
     Dates: start: 20110101

REACTIONS (1)
  - RENAL FAILURE ACUTE [None]
